FAERS Safety Report 11120969 (Version 1)
Quarter: 2015Q2

REPORT INFORMATION
  Report Type: Spontaneous
  Country: FR (occurrence: FR)
  Receive Date: 20150519
  Receipt Date: 20150519
  Transmission Date: 20150821
  Serious: Yes (Hospitalization, Other)
  Sender: FDA-Public Use
  Company Number: FR-ACCORD-030838

PATIENT
  Age: 29 Year
  Sex: Female

DRUGS (2)
  1. MYCOPHENOLIC ACID. [Suspect]
     Active Substance: MYCOPHENOLIC ACID
     Indication: BONE MARROW TRANSPLANT
  2. EVEROLIMUS [Suspect]
     Active Substance: EVEROLIMUS
     Indication: BONE MARROW TRANSPLANT

REACTIONS (3)
  - Blood cholesterol increased [Unknown]
  - Femur fracture [Unknown]
  - Hypertriglyceridaemia [Recovering/Resolving]
